FAERS Safety Report 7373888 (Version 4)
Quarter: 2013Q3

REPORT INFORMATION
  Report Type: Spontaneous
  Country: US (occurrence: US)
  Receive Date: 20100503
  Receipt Date: 20130712
  Transmission Date: 20140515
  Serious: Yes (Other)
  Sender: FDA-Public Use
  Company Number: US-JNJFOC-20100406434

PATIENT
  Age: 55 Year
  Sex: Female
  Weight: 101.15 kg

DRUGS (15)
  1. REMICADE [Suspect]
     Indication: COLITIS ULCERATIVE
     Dosage: 6 VIALS
     Route: 042
     Dates: start: 20100309
  2. REMICADE [Suspect]
     Indication: COLITIS ULCERATIVE
     Route: 042
     Dates: start: 20100330
  3. REMICADE [Suspect]
     Indication: COLITIS ULCERATIVE
     Route: 042
     Dates: start: 20100420
  4. REMICADE [Suspect]
     Indication: COLITIS ULCERATIVE
     Dosage: 4TH INFUSION
     Route: 042
     Dates: start: 20100616, end: 20100616
  5. BENADRYL [Concomitant]
     Indication: PREMEDICATION
     Dosage: ^QD^
     Route: 048
     Dates: start: 20100616
  6. GABAPENTIN [Concomitant]
     Indication: FIBROMYALGIA
     Route: 048
     Dates: start: 20100225
  7. TRAMADOL [Concomitant]
     Indication: FIBROMYALGIA
     Dosage: AS NECESSARY
     Route: 048
     Dates: start: 20100225
  8. CITALOPRAM [Concomitant]
     Route: 048
     Dates: start: 20100225
  9. GLIMEPIRIDE [Concomitant]
     Route: 048
     Dates: start: 20100225
  10. HUMULIN INSULIN N [Concomitant]
     Dosage: SLIDING SCALE
     Route: 058
     Dates: start: 20100225
  11. HUMALOG [Concomitant]
     Dosage: SLIDING SCALE
     Route: 058
     Dates: start: 20100225
  12. LISINOPRIL [Concomitant]
     Route: 048
     Dates: start: 20100811
  13. TYLENOL [Concomitant]
     Indication: PREMEDICATION
     Route: 048
     Dates: start: 20100616
  14. PREDNISONE [Concomitant]
     Route: 065
     Dates: start: 20100225
  15. INSULIN (HUMULIN) [Concomitant]
     Dosage: SLIDING SCALE
     Route: 065
     Dates: end: 20100225

REACTIONS (14)
  - Dyspnoea [Recovered/Resolved]
  - Pain [Recovered/Resolved]
  - Infusion related reaction [Recovered/Resolved]
  - Dysphagia [Recovering/Resolving]
  - Oropharyngeal pain [Recovering/Resolving]
  - Blood pressure increased [Recovered/Resolved]
  - Dysphonia [Unknown]
  - Ear pain [Unknown]
  - Headache [Unknown]
  - Erythema [Recovered/Resolved]
  - Vomiting [Recovered/Resolved]
  - Nausea [Recovered/Resolved]
  - Skin burning sensation [Recovered/Resolved]
  - Dizziness [Recovered/Resolved]
